FAERS Safety Report 18097307 (Version 3)
Quarter: 2020Q3

REPORT INFORMATION
  Report Type: Spontaneous
  Country: JP (occurrence: JP)
  Receive Date: 20200731
  Receipt Date: 20200930
  Transmission Date: 20201103
  Serious: Yes (Hospitalization)
  Sender: FDA-Public Use
  Company Number: NVSJ2020JP007220

PATIENT
  Age: 86 Year
  Sex: Male

DRUGS (1)
  1. COSENTYX [Suspect]
     Active Substance: SECUKINUMAB
     Indication: PUSTULAR PSORIASIS
     Dosage: 300 MG,UNK
     Route: 058
     Dates: start: 20200709

REACTIONS (3)
  - Lacunar infarction [Unknown]
  - Pulmonary mass [Unknown]
  - Dysarthria [Unknown]
